FAERS Safety Report 16940198 (Version 1)
Quarter: 2019Q4

REPORT INFORMATION
  Report Type: Spontaneous
  Country: US (occurrence: US)
  Receive Date: 20191021
  Receipt Date: 20191021
  Transmission Date: 20200122
  Serious: No
  Sender: FDA-Public Use
  Company Number: US-AKRON, INC.-2075860

PATIENT
  Sex: Female

DRUGS (1)
  1. CIMETIDINE HCL ORAL SOLUTION [Suspect]
     Active Substance: CIMETIDINE HYDROCHLORIDE
     Route: 048

REACTIONS (5)
  - Disorientation [Recovered/Resolved]
  - Somnolence [Recovered/Resolved]
  - Abdominal pain [Recovered/Resolved]
  - Diarrhoea [Recovered/Resolved]
  - Gastrointestinal hypomotility [Recovered/Resolved]
